FAERS Safety Report 8954559 (Version 1)
Quarter: 2012Q4

REPORT INFORMATION
  Report Type: 
  Country: US (occurrence: US)
  Receive Date: 20121207
  Receipt Date: 20121207
  Transmission Date: 20130627
  Serious: Yes (Other)
  Sender: FDA-Public Use
  Company Number: US-ELI_LILLY_AND_COMPANY-US201211008969

PATIENT
  Sex: Female

DRUGS (1)
  1. FORTEO [Suspect]
     Indication: OSTEOPOROSIS
     Dosage: UNK, qd
     Route: 065
     Dates: start: 201205

REACTIONS (6)
  - Cataract operation [Unknown]
  - Retinal vascular occlusion [Unknown]
  - Sneezing [Unknown]
  - Hypersensitivity [Unknown]
  - Vision blurred [Unknown]
  - Lacrimation increased [Unknown]
